FAERS Safety Report 9102725 (Version 1)
Quarter: 2013Q1

REPORT INFORMATION
  Report Type: Spontaneous
  Country: US (occurrence: US)
  Receive Date: 20130218
  Receipt Date: 20130218
  Transmission Date: 20140127
  Serious: Yes (Other)
  Sender: FDA-Public Use
  Company Number: US-ELI_LILLY_AND_COMPANY-US201302001991

PATIENT
  Sex: Female
  Weight: 90.7 kg

DRUGS (11)
  1. CYMBALTA [Suspect]
     Dosage: UNK, UNKNOWN
     Route: 065
  2. HUMIRA [Concomitant]
     Indication: PSORIATIC ARTHROPATHY
     Dosage: 40 MG, WEEKLY (1/W)
     Dates: start: 2011
  3. DEPAKOTE [Concomitant]
     Dosage: 500 MG, UNKNOWN
     Dates: start: 1996, end: 2012
  4. ARAVA [Concomitant]
  5. LEVOTHYROXINE [Concomitant]
  6. OMEPRAZOLE [Concomitant]
  7. TRAMADOL [Concomitant]
     Dosage: UNK, PRN
     Dates: start: 1983
  8. LORAZEPAM [Concomitant]
  9. LYRICA [Concomitant]
  10. TYLENOL                                 /SCH/ [Concomitant]
  11. ADVAIR [Concomitant]

REACTIONS (11)
  - Respiratory depression [Not Recovered/Not Resolved]
  - Cerebrovascular accident [Recovered/Resolved]
  - Arrhythmia [Unknown]
  - Drug interaction [Unknown]
  - Asthma [Unknown]
  - Drug tolerance decreased [Unknown]
  - Urinary bladder atrophy [Unknown]
  - Bladder spasm [Unknown]
  - Nocturia [Unknown]
  - Blood pressure increased [Unknown]
  - Feeling abnormal [Unknown]
